FAERS Safety Report 9971204 (Version 2)
Quarter: 2014Q1

REPORT INFORMATION
  Report Type: Report from Study
  Country: US (occurrence: US)
  Receive Date: 20140306
  Receipt Date: 20140306
  Transmission Date: 20141002
  Serious: No
  Sender: FDA-Public Use
  Company Number: US-ABBVIE-13P-163-1116680-00

PATIENT
  Age: 61 Year
  Sex: Female
  Weight: 68.55 kg

DRUGS (11)
  1. HUMIRA [Suspect]
     Indication: CROHN^S DISEASE
     Dates: start: 20130301, end: 201304
  2. HUMIRA [Suspect]
     Indication: RHEUMATOID ARTHRITIS
     Dates: start: 201304, end: 20130607
  3. PENTASA [Concomitant]
     Indication: CROHN^S DISEASE
  4. LEVOTHYROXINE [Concomitant]
     Indication: THYROID DISORDER
  5. LANSOPRAZOLE [Concomitant]
     Indication: GASTROOESOPHAGEAL REFLUX DISEASE
  6. MULTIVITAMIN [Concomitant]
     Indication: PRODUCT USED FOR UNKNOWN INDICATION
  7. IBUPROFEN [Concomitant]
     Indication: PAIN
  8. TRAMADOL [Concomitant]
     Indication: PAIN
  9. SYNTHROID [Concomitant]
     Indication: HYPOTHYROIDISM
  10. ALBUTEROL [Concomitant]
     Indication: ASTHMA
  11. ADVAIR [Concomitant]
     Indication: ASTHMA

REACTIONS (2)
  - Psoriasis [Recovering/Resolving]
  - Rash [Unknown]
